FAERS Safety Report 5210959-0 (Version None)
Quarter: 2007Q1

REPORT INFORMATION
  Report Type: 
  Country: None (occurrence: None)
  Receive Date: 20070117
  Receipt Date: 20070105
  Transmission Date: 20070707
  Serious: Yes (Other)
  Sender: FDA-Public Use
  Company Number: US-PFIZER INC-2007002709

PATIENT
  Age: 54 Year
  Sex: Female
  Weight: 66.7 kg

DRUGS (4)
  1. LYRICA [Suspect]
     Indication: NEURALGIA
  2. CELEXA [Concomitant]
  3. MOTRIN [Concomitant]
  4. ALEVE [Concomitant]

REACTIONS (6)
  - DISTURBANCE IN ATTENTION [None]
  - DIZZINESS [None]
  - DRY MOUTH [None]
  - GAIT DISTURBANCE [None]
  - IMPAIRED DRIVING ABILITY [None]
  - SOMNOLENCE [None]
